FAERS Safety Report 4286059-3 (Version None)
Quarter: 2004Q1

REPORT INFORMATION
  Report Type: 
  Country: None (occurrence: None)
  Receive Date: 20040203
  Receipt Date: 20040122
  Transmission Date: 20041129
  Serious: Yes (Hospitalization, Other)
  Sender: FDA-Public Use
  Company Number: HQWYE537723JAN04

PATIENT
  Age: 12 Month
  Sex: Male

DRUGS (6)
  1. CHILDREN'S ADVIL [Suspect]
     Indication: VARICELLA
     Dosage: 75 MG X 4/D ORAL
     Route: 048
     Dates: start: 20020505, end: 20020508
  2. DERMACHROME (LIDOCAINE HYDROCHLORIDE/PHENYLEPHRINE HYDROCHLORIDE/THIOM [Concomitant]
  3. BRONCHOKOD (CARBOCISTEINE) [Concomitant]
  4. NISAPULVOL (BENZYL HYDROXYBENZOATE/ETHYLPARABEN E214/METHYLPARABEN E21 [Concomitant]
  5. POLARAMINE [Concomitant]
  6. PARACETAMOL (PARACETAMOL) [Concomitant]

REACTIONS (6)
  - CONDITION AGGRAVATED [None]
  - EAR INFECTION [None]
  - EYELID OEDEMA [None]
  - PURULENT DISCHARGE [None]
  - UPPER RESPIRATORY TRACT INFECTION [None]
  - VARICELLA [None]
